FAERS Safety Report 24343605 (Version 2)
Quarter: 2024Q4

REPORT INFORMATION
  Report Type: Spontaneous
  Country: PT (occurrence: PT)
  Receive Date: 20240920
  Receipt Date: 20241008
  Transmission Date: 20250115
  Serious: Yes (Death, Hospitalization, Other)
  Sender: RANBAXY
  Company Number: PT-SUN PHARMACEUTICAL INDUSTRIES LTD-2024R1-468784

PATIENT
  Age: 79 Year
  Sex: Male

DRUGS (1)
  1. DEXAMETHASONE [Suspect]
     Active Substance: DEXAMETHASONE
     Indication: Lymphangiosis carcinomatosa
     Dosage: UNK
     Route: 065

REACTIONS (1)
  - Condition aggravated [Fatal]
